FAERS Safety Report 8922845 (Version 2)
Quarter: 2013Q2

REPORT INFORMATION
  Report Type: Spontaneous
  Country: FR (occurrence: FR)
  Receive Date: 20121123
  Receipt Date: 20130506
  Transmission Date: 20140414
  Serious: Yes (Other)
  Sender: FDA-Public Use
  Company Number: FR-ROCHE-1159303

PATIENT
  Age: 69 Year
  Sex: Male

DRUGS (10)
  1. XELODA [Suspect]
     Indication: PRODUCT USED FOR UNKNOWN INDICATION
     Route: 048
     Dates: start: 201104, end: 201110
  2. PAMIDRONATE [Suspect]
     Indication: PRODUCT USED FOR UNKNOWN INDICATION
     Route: 042
  3. ZOMETA [Suspect]
     Indication: PRODUCT USED FOR UNKNOWN INDICATION
     Route: 042
  4. TAMOXIFENE [Suspect]
     Indication: PRODUCT USED FOR UNKNOWN INDICATION
     Route: 048
  5. PACLITAXEL [Suspect]
     Indication: PRODUCT USED FOR UNKNOWN INDICATION
     Route: 042
     Dates: start: 201104, end: 201110
  6. AMLOR [Concomitant]
  7. ZYLORIC [Concomitant]
  8. TAHOR [Concomitant]
  9. KARDEGIC [Concomitant]
  10. SELOKEN [Concomitant]

REACTIONS (1)
  - Intravascular papillary endothelial hyperplasia [Unknown]
